FAERS Safety Report 15736928 (Version 2)
Quarter: 2019Q1

REPORT INFORMATION
  Report Type: Report from Study
  Country: US (occurrence: US)
  Receive Date: 20181218
  Receipt Date: 20190128
  Transmission Date: 20190417
  Serious: Yes (Hospitalization)
  Sender: FDA-Public Use
  Company Number: US-ACTELION-A-NJ2018-183435

PATIENT
  Age: 63 Year
  Sex: Male

DRUGS (19)
  1. ANDROGEL [Concomitant]
     Active Substance: TESTOSTERONE
  2. ASPIRIN 81 [Concomitant]
     Active Substance: ASPIRIN
  3. NEXIUM [Concomitant]
     Active Substance: ESOMEPRAZOLE MAGNESIUM
  4. PERCOCET [Concomitant]
     Active Substance: ACETAMINOPHEN\OXYCODONE HYDROCHLORIDE
  5. MAGNESIUM [Concomitant]
     Active Substance: MAGNESIUM
  6. PREDNISONE. [Concomitant]
     Active Substance: PREDNISONE
  7. TRICOR [Concomitant]
     Active Substance: FENOFIBRATE
  8. OPSUMIT [Suspect]
     Active Substance: MACITENTAN
     Indication: PULMONARY ARTERIAL HYPERTENSION
     Dosage: 10 MG, QD
     Route: 048
  9. MORPHINE SULFATE. [Concomitant]
     Active Substance: MORPHINE SULFATE
  10. TORSEMIDE. [Concomitant]
     Active Substance: TORSEMIDE
  11. DIGOXIN. [Concomitant]
     Active Substance: DIGOXIN
  12. SYNTHROID [Concomitant]
     Active Substance: LEVOTHYROXINE SODIUM
  13. LOVAZA [Concomitant]
     Active Substance: OMEGA-3-ACID ETHYL ESTERS
  14. MULTIVITAMIN [Concomitant]
     Active Substance: VITAMINS
  15. ZETIA [Concomitant]
     Active Substance: EZETIMIBE
  16. ADEMPAS [Concomitant]
     Active Substance: RIOCIGUAT
  17. BUSPIRONE HCL [Concomitant]
     Active Substance: BUSPIRONE HYDROCHLORIDE
  18. ELIQUIS [Concomitant]
     Active Substance: APIXABAN
  19. REMODULIN [Concomitant]
     Active Substance: TREPROSTINIL

REACTIONS (2)
  - Product dose omission [Recovered/Resolved]
  - Hospitalisation [Unknown]

NARRATIVE: CASE EVENT DATE: 20181120
